FAERS Safety Report 6387286-1 (Version None)
Quarter: 2009Q4

REPORT INFORMATION
  Report Type: 
  Country: None (occurrence: None)
  Receive Date: 20091002
  Receipt Date: 20091001
  Transmission Date: 20100525
  Serious: Yes (Death)
  Sender: FDA-Public Use
  Company Number: US-GILEAD-2009-0024413

PATIENT
  Sex: Male

DRUGS (10)
  1. LETAIRIS [Suspect]
     Indication: PULMONARY ARTERIAL HYPERTENSION
     Dates: start: 20090209
  2. PROTONIX [Concomitant]
  3. LIPITOR [Concomitant]
  4. NITRO-DUR [Concomitant]
  5. COZAAR [Concomitant]
  6. LANTUS [Concomitant]
  7. BUMEX [Concomitant]
  8. KLOR-CON [Concomitant]
  9. PROZAC [Concomitant]
  10. FERROUS GLUCONATE [Concomitant]

REACTIONS (1)
  - RESPIRATORY FAILURE [None]
